FAERS Safety Report 15884856 (Version 1)
Quarter: 2019Q1

REPORT INFORMATION
  Report Type: Spontaneous
  Country: US (occurrence: US)
  Receive Date: 20190129
  Receipt Date: 20190129
  Transmission Date: 20190417
  Serious: No
  Sender: FDA-Public Use
  Company Number: US-EGALET US INC-US-2018EGA001082

PATIENT

DRUGS (2)
  1. ARYMO ER [Suspect]
     Active Substance: MORPHINE SULFATE
     Indication: NECK PAIN
     Dosage: 30 MG, BID
     Dates: start: 2018, end: 20181213
  2. ARYMO ER [Suspect]
     Active Substance: MORPHINE SULFATE
     Dosage: 30 MG, BID
     Dates: start: 20181216

REACTIONS (4)
  - Pain [Recovered/Resolved]
  - Withdrawal syndrome [Recovered/Resolved]
  - Malaise [Recovered/Resolved]
  - Product dose omission [Recovered/Resolved]

NARRATIVE: CASE EVENT DATE: 20181213
